FAERS Safety Report 10244406 (Version 1)
Quarter: 2014Q1

REPORT INFORMATION
  Report Type: Spontaneous
  Country: US (occurrence: None)
  Receive Date: 20140306
  Receipt Date: 20140306
  Transmission Date: 20141002
  Serious: Yes (Hospitalization, Other)
  Sender: FDA-Public Use
  Company Number: 163-21880-13101393

PATIENT
  Age: 64 Year
  Sex: Male

DRUGS (1)
  1. REVLIMID (LENALIDOMIDE) (2.5 MILLIGRAM, CAPSULES) [Suspect]
     Indication: PLASMA CELL MYELOMA
     Dosage: 2.5 MG, 21 IN 28 D, PO
     Route: 048
     Dates: start: 20130916, end: 20130926

REACTIONS (1)
  - Pneumonia [None]
